FAERS Safety Report 24435078 (Version 1)
Quarter: 2024Q4

REPORT INFORMATION
  Report Type: Report from Study
  Country: US (occurrence: US)
  Receive Date: 20241014
  Receipt Date: 20241014
  Transmission Date: 20250115
  Serious: Yes (Other)
  Sender: ABBVIE
  Company Number: US-ABBVIE-5957086

PATIENT
  Sex: Female

DRUGS (1)
  1. IMBRUVICA [Suspect]
     Active Substance: IBRUTINIB
     Indication: Chronic lymphocytic leukaemia
     Route: 048
     Dates: start: 202109

REACTIONS (8)
  - Shoulder arthroplasty [Unknown]
  - Knee arthroplasty [Unknown]
  - Gastrointestinal disorder [Unknown]
  - Musculoskeletal disorder [Unknown]
  - Back disorder [Unknown]
  - Abdominal pain [Unknown]
  - Depression [Unknown]
  - Loss of personal independence in daily activities [Unknown]

NARRATIVE: CASE EVENT DATE: 20240101
